FAERS Safety Report 24607057 (Version 1)
Quarter: 2024Q4

REPORT INFORMATION
  Report Type: Spontaneous
  Country: US (occurrence: None)
  Receive Date: 20241108
  Receipt Date: 20241108
  Transmission Date: 20250114
  Serious: Yes (unspecified)
  Sender: Public
  Company Number: None

PATIENT
  Age: 42 Year
  Sex: Male

DRUGS (1)
  1. ALLERGENIC EXTRACTS [Suspect]
     Active Substance: ALLERGENIC EXTRACTS
     Indication: Rhinitis allergic
     Dates: start: 20231211

REACTIONS (8)
  - Abdominal discomfort [None]
  - Anaphylactic reaction [None]
  - Angina pectoris [None]
  - Hyperhidrosis [None]
  - Ocular hyperaemia [None]
  - Fatigue [None]
  - Somnolence [None]
  - Fatigue [None]

NARRATIVE: CASE EVENT DATE: 20240909
